FAERS Safety Report 5091143-0 (Version None)
Quarter: 2006Q3

REPORT INFORMATION
  Report Type: 
  Country: None (occurrence: None)
  Receive Date: 20060829
  Receipt Date: 20060817
  Transmission Date: 20061208
  Serious: Yes (Death, Other)
  Sender: FDA-Public Use
  Company Number: US-JNJFOC-20060505783

PATIENT
  Sex: Female

DRUGS (10)
  1. REMICADE [Suspect]
     Indication: RHEUMATOID ARTHRITIS
     Route: 042
  2. LEVAQUIN [Suspect]
     Indication: DRUG USE FOR UNKNOWN INDICATION
  3. EVISTA [Concomitant]
     Indication: HORMONE REPLACEMENT THERAPY
  4. FOSAMAX [Concomitant]
     Indication: OSTEOPOROSIS
  5. DIOVAN HCT [Concomitant]
     Indication: BLOOD PRESSURE
  6. ULTRACET [Concomitant]
     Indication: PAIN
  7. LASIX [Concomitant]
     Indication: BLOOD PRESSURE
  8. POTASSIUM CHLORIDE [Concomitant]
  9. METHOTREXATE [Concomitant]
     Indication: RHEUMATOID ARTHRITIS
  10. ACTOS [Concomitant]
     Indication: DIABETES MELLITUS

REACTIONS (3)
  - GLOMERULONEPHRITIS [None]
  - PULMONARY HAEMORRHAGE [None]
  - VASCULITIS [None]
